FAERS Safety Report 6527591-9 (Version None)
Quarter: 2010Q1

REPORT INFORMATION
  Report Type: 
  Country: None (occurrence: None)
  Receive Date: 20100105
  Receipt Date: 20091228
  Transmission Date: 20100710
  Serious: Yes (Death, Hospitalization)
  Sender: FDA-Public Use
  Company Number: PHHO2009US15749

PATIENT
  Sex: Male
  Weight: 104 kg

DRUGS (11)
  1. CERTICAN [Suspect]
     Indication: LIVER TRANSPLANT
     Dosage: 1 MG, Q12H
     Route: 048
     Dates: start: 20091117, end: 20091216
  2. PROGRAF [Suspect]
  3. CELLCEPT [Concomitant]
  4. ASPIRIN [Concomitant]
  5. BACTRIM [Concomitant]
  6. URSODIOL [Concomitant]
  7. VALCYTE [Concomitant]
  8. MAGNESIUM OXIDE [Concomitant]
  9. OMEPRAZOLE [Concomitant]
  10. LOPRESSOR [Concomitant]
  11. NEURONTIN [Concomitant]

REACTIONS (7)
  - ABASIA [None]
  - BACK PAIN [None]
  - MULTI-ORGAN FAILURE [None]
  - PYREXIA [None]
  - SEPSIS [None]
  - TREMOR [None]
  - UNRESPONSIVE TO STIMULI [None]
